FAERS Safety Report 6554051-1 (Version None)
Quarter: 2010Q1

REPORT INFORMATION
  Report Type: 
  Country: None (occurrence: None)
  Receive Date: 20100122
  Receipt Date: 20100107
  Transmission Date: 20100710
  Serious: Yes (Hospitalization)
  Sender: FDA-Public Use
  Company Number: 2010000119

PATIENT
  Sex: Male

DRUGS (13)
  1. TARCEVA [Suspect]
     Indication: LUNG NEOPLASM MALIGNANT
     Dosage: (100 MG,QOD),ORAL
     Route: 048
     Dates: start: 20091019
  2. GABAPENTIN [Concomitant]
  3. JANUMET [Concomitant]
  4. NOVOLOG [Concomitant]
  5. NEXIUM [Concomitant]
  6. GLIMEPIRIDE [Concomitant]
  7. CIPRO [Concomitant]
  8. PROMETHAZINE [Concomitant]
  9. DESVENLAFAXINE [Concomitant]
  10. ALPRAZOLAM [Concomitant]
  11. ATORVASTATIN CALCIUM [Concomitant]
  12. MEGESTROL ACETATE [Concomitant]
  13. HYDROCODONE (HYDROCODONE) [Concomitant]

REACTIONS (2)
  - DIARRHOEA [None]
  - PULMONARY EMBOLISM [None]
